FAERS Safety Report 5452084-X (Version None)
Quarter: 2007Q3

REPORT INFORMATION
  Report Type: 
  Country: None (occurrence: None)
  Receive Date: 20070803
  Receipt Date: 20070509
  Transmission Date: 20080115
  Serious: Yes (Hospitalization)
  Sender: FDA-Public Use
  Company Number: FACT0700094

PATIENT
  Age: 35 Year
  Sex: Female
  Weight: 69.8 kg

DRUGS (1)
  1. FACTIVE [Suspect]
     Indication: RESPIRATORY DISORDER
     Dosage: 320 MG
     Dates: start: 20070409, end: 20070413

REACTIONS (1)
  - RASH PRURITIC [None]
